FAERS Safety Report 16218500 (Version 1)
Quarter: 2019Q2

REPORT INFORMATION
  Report Type: Report from Study
  Country: PA (occurrence: PA)
  Receive Date: 20190419
  Receipt Date: 20190419
  Transmission Date: 20190711
  Serious: Yes (Hospitalization)
  Sender: FDA-Public Use
  Company Number: PHHY2019PA088519

PATIENT
  Age: 71 Year
  Sex: Female

DRUGS (1)
  1. CO-DIOVAN [Suspect]
     Active Substance: HYDROCHLOROTHIAZIDE\VALSARTAN
     Indication: PRODUCT USED FOR UNKNOWN INDICATION
     Dosage: UNK ((VALSARTAN 320 MG, HYDROCHLOROTHIAZIDE 25 MG)
     Route: 065
     Dates: start: 2018

REACTIONS (3)
  - Diabetes mellitus [Unknown]
  - Diabetic foot [Unknown]
  - Impaired healing [Unknown]
